FAERS Safety Report 12667982 (Version 1)
Quarter: 2016Q3

REPORT INFORMATION
  Report Type: Report from Study
  Country: US (occurrence: US)
  Receive Date: 20160819
  Receipt Date: 20160819
  Transmission Date: 20161109
  Serious: Yes (Other)
  Sender: FDA-Public Use
  Company Number: US-PFIZER INC-2016385752

PATIENT
  Age: 15 Year
  Sex: Male

DRUGS (13)
  1. BACITRACIN-POLYMYXIN B [Concomitant]
     Active Substance: BACITRACIN ZINC\POLYMYXIN B SULFATE
     Dosage: UNK, BID
     Route: 061
  2. CO-TRIMOXAZOLE DS [Concomitant]
     Dosage: 160 MG, BID MONDAY/TUESDAY
     Route: 048
  3. POLYETHYLENE GLYCOL [Concomitant]
     Active Substance: POLYETHYLENE GLYCOLS
     Dosage: 17 G, BID
     Route: 048
  4. SENNOSIDES. [Concomitant]
     Active Substance: SENNOSIDES
     Dosage: 8/6MG, BID
     Route: 048
  5. METHOTREXATE SODIUM. [Suspect]
     Active Substance: METHOTREXATE SODIUM
     Route: 037
  6. HYDROMORPHONE PCA [Concomitant]
  7. GABAPENTIN. [Concomitant]
     Active Substance: GABAPENTIN
     Dosage: 800 MG, TID
     Route: 048
  8. BLINATUMOMAB [Concomitant]
     Active Substance: BLINATUMOMAB
     Dosage: UNK
     Dates: start: 20160629, end: 20160726
  9. PIPERACILLIN AND TAZOBACTAM [Concomitant]
     Active Substance: PIPERACILLIN SODIUM\TAZOBACTAM SODIUM
     Dosage: Q6H
     Route: 042
  10. LIPOSOMAL AMPHOTERICIN [Concomitant]
     Active Substance: AMPHOTERICIN B
     Dosage: 548 MG, Q24HR
     Route: 042
  11. VORICONAZOLE. [Concomitant]
     Active Substance: VORICONAZOLE
     Dosage: 400 MG, 2X/DAY
     Route: 042
  12. METHADONE [Concomitant]
     Active Substance: METHADONE HYDROCHLORIDE
     Dosage: 10 MG, Q12H
     Route: 048
  13. DIAZEPAM. [Concomitant]
     Active Substance: DIAZEPAM
     Dosage: 2 MG, QHS
     Route: 048

REACTIONS (4)
  - Dysarthria [Unknown]
  - Neurotoxicity [Unknown]
  - Mental status changes [Unknown]
  - Ataxia [Unknown]
